FAERS Safety Report 21590781 (Version 1)
Quarter: 2022Q4

REPORT INFORMATION
  Report Type: Spontaneous
  Country: GB (occurrence: GB)
  Receive Date: 20221114
  Receipt Date: 20221114
  Transmission Date: 20230113
  Serious: Yes (Other)
  Sender: FDA-Public Use
  Company Number: GB-MHRA-MED-202210251708279690-SCQKY

PATIENT
  Sex: Male

DRUGS (2)
  1. SELPERCATINIB [Suspect]
     Active Substance: SELPERCATINIB
     Indication: Medullary thyroid cancer
     Dosage: 160 MG
     Route: 065
     Dates: start: 20221004
  2. SELPERCATINIB [Suspect]
     Active Substance: SELPERCATINIB
     Dosage: 120 MG, BID
     Route: 065

REACTIONS (1)
  - Sinus bradycardia [Recovered/Resolved]

NARRATIVE: CASE EVENT DATE: 20221010
